FAERS Safety Report 5472119-8 (Version None)
Quarter: 2007Q3

REPORT INFORMATION
  Report Type: 
  Country: None (occurrence: None)
  Receive Date: 20070925
  Receipt Date: 20070911
  Transmission Date: 20080115
  Serious: Yes (Other)
  Sender: FDA-Public Use
  Company Number: 2007VX002306

PATIENT
  Age: 47 Year
  Sex: Female

DRUGS (10)
  1. INTERFERON ALFACON-1 [Suspect]
     Indication: HEPATITIS C
     Dosage: 15 UG; QD; SC
     Route: 058
     Dates: start: 20070706
  2. RIBAVIRIN [Suspect]
     Indication: HEPATITIS C
     Dosage: 600 MG; QAM; PO; 400 MG; QPM; PO; 200 MG; QAM; PO; 400 MG; QAM; PO
     Route: 048
     Dates: end: 20070906
  3. RIBAVIRIN [Suspect]
     Indication: HEPATITIS C
     Dosage: 600 MG; QAM; PO; 400 MG; QPM; PO; 200 MG; QAM; PO; 400 MG; QAM; PO
     Route: 048
     Dates: end: 20070906
  4. RIBAVIRIN [Suspect]
     Indication: HEPATITIS C
     Dosage: 600 MG; QAM; PO; 400 MG; QPM; PO; 200 MG; QAM; PO; 400 MG; QAM; PO
     Route: 048
     Dates: start: 20070907
  5. RIBAVIRIN [Suspect]
     Indication: HEPATITIS C
     Dosage: 600 MG; QAM; PO; 400 MG; QPM; PO; 200 MG; QAM; PO; 400 MG; QAM; PO
     Route: 048
     Dates: start: 20070907
  6. IMODIUM [Concomitant]
  7. ULTRAM [Concomitant]
  8. SEROQUEL [Concomitant]
  9. ELAVIL [Concomitant]
  10. VALTREX [Concomitant]

REACTIONS (1)
  - RED BLOOD CELL COUNT DECREASED [None]
